FAERS Safety Report 8008230-7 (Version None)
Quarter: 2011Q4

REPORT INFORMATION
  Report Type: 
  Country: None (occurrence: None)
  Receive Date: 20111123
  Receipt Date: 20111007
  Transmission Date: 20120403
  Serious: No
  Sender: FDA-Public Use
  Company Number: 336810

PATIENT
  Age: 49 Year
  Sex: Female

DRUGS (4)
  1. VICTOZA [Suspect]
     Indication: TYPE 2 DIABETES MELLITUS
     Dosage: 0.6 MG, QD, SUBCUTANEOUS; 1.2 MG, QD
     Dates: end: 20110701
  2. VICTOZA [Suspect]
     Indication: TYPE 2 DIABETES MELLITUS
     Dosage: 0.6 MG, QD, SUBCUTANEOUS; 1.2 MG, QD
     Dates: start: 20110511
  3. SYNTHROID [Suspect]
     Indication: HYPOTHYROIDISM
     Dosage: 0.7 UNK, ORAL; 0.8 UNK
     Route: 048
  4. AMBIEN [Concomitant]

REACTIONS (2)
  - GOITRE [None]
  - PHARYNGEAL ERYTHEMA [None]
